FAERS Safety Report 5805844-7 (Version None)
Quarter: 2008Q3

REPORT INFORMATION
  Report Type: 
  Country: None (occurrence: None)
  Receive Date: 20080710
  Receipt Date: 20080707
  Transmission Date: 20090109
  Serious: Yes (Death, Hospitalization)
  Sender: FDA-Public Use
  Company Number: US-ASTRAZENECA-2008UW13572

PATIENT
  Age: 92 Year
  Sex: Male
  Weight: 64.9 kg

DRUGS (4)
  1. SEROQUEL [Suspect]
     Indication: AGITATION
     Dosage: 25 MG HS AND 12.5 MG DURING THE DAY
     Route: 048
     Dates: start: 20080702, end: 20080703
  2. ATIVAN [Concomitant]
  3. SYNTHROID [Concomitant]
  4. ASPIRIN [Concomitant]

REACTIONS (6)
  - ABNORMAL BEHAVIOUR [None]
  - AGITATION [None]
  - CARDIO-RESPIRATORY ARREST [None]
  - DEATH [None]
  - DECREASED APPETITE [None]
  - DYSPNOEA [None]
